FAERS Safety Report 12504634 (Version 4)
Quarter: 2016Q3

REPORT INFORMATION
  Report Type: Spontaneous
  Country: FR (occurrence: FR)
  Receive Date: 20160628
  Receipt Date: 20160907
  Transmission Date: 20161109
  Serious: Yes (Hospitalization)
  Sender: FDA-Public Use
  Company Number: FR-GE HEALTHCARE MEDICAL DIAGNOSTICS-VISP-PR-1606S-0373

PATIENT
  Age: 88 Year
  Sex: Male

DRUGS (6)
  1. ISOPTINE [Suspect]
     Active Substance: VERAPAMIL HYDROCHLORIDE
     Indication: ISCHAEMIC CARDIOMYOPATHY
     Route: 042
     Dates: start: 20160601, end: 20160601
  2. VISIPAQUE [Suspect]
     Active Substance: IODIXANOL
     Indication: DIAGNOSTIC PROCEDURE
  3. RISORDAN [Suspect]
     Active Substance: ISOSORBIDE DINITRATE
     Indication: ISCHAEMIC CARDIOMYOPATHY
     Route: 022
     Dates: start: 20160601, end: 20160601
  4. HEPARIN PANPHARMA [Concomitant]
  5. VISIPAQUE [Suspect]
     Active Substance: IODIXANOL
     Indication: ISCHAEMIC CARDIOMYOPATHY
     Route: 042
     Dates: start: 20160601, end: 20160601
  6. KRENOSIN [Concomitant]
     Active Substance: ADENOSINE

REACTIONS (4)
  - Overdose [Unknown]
  - Sepsis syndrome [Unknown]
  - Chills [Unknown]
  - Hyperthermia [Recovered/Resolved]

NARRATIVE: CASE EVENT DATE: 2016
